FAERS Safety Report 8797802 (Version 1)
Quarter: 2012Q4

REPORT INFORMATION
  Report Type: Spontaneous
  Country: US (occurrence: None)
  Receive Date: 20120917
  Receipt Date: 20120917
  Transmission Date: 20130627
  Serious: No
  Sender: FDA-Public Use
  Company Number: None

PATIENT
  Age: 30 Year
  Sex: Female
  Weight: 63.5 kg

DRUGS (1)
  1. TOPAMAX 75 MG [Suspect]
     Indication: MIGRAINE HEADACHE
     Dosage: 75 mg 1xD po
     Route: 048
     Dates: start: 20120910, end: 20120912

REACTIONS (1)
  - Visual acuity reduced [None]
